FAERS Safety Report 7564722-6 (Version None)
Quarter: 2011Q2

REPORT INFORMATION
  Report Type: 
  Country: None (occurrence: None)
  Receive Date: 20110622
  Receipt Date: 20100924
  Transmission Date: 20111010
  Serious: Yes (Death)
  Sender: FDA-Public Use
  Company Number: US-MYLANLABS-2010S1017744

PATIENT
  Age: 76 Year
  Sex: Male

DRUGS (6)
  1. ZYPREXA [Concomitant]
  2. XOPENEX [Concomitant]
  3. CLOZAPINE [Suspect]
     Route: 048
  4. AMBIEN [Concomitant]
  5. PROTONIX [Concomitant]
  6. NORVASC [Concomitant]

REACTIONS (1)
  - DEATH [None]
